FAERS Safety Report 9272922 (Version 2)
Quarter: 2013Q2

REPORT INFORMATION
  Report Type: Spontaneous
  Country: SE (occurrence: SE)
  Receive Date: 20130506
  Receipt Date: 20130610
  Transmission Date: 20140414
  Serious: Yes (Life-Threatening)
  Sender: FDA-Public Use
  Company Number: SE-ASTRAZENECA-2013SE30710

PATIENT
  Age: 73 Year
  Sex: Male

DRUGS (1)
  1. BRILIQUE [Suspect]
     Indication: CARDIAC DISORDER
     Route: 048
     Dates: start: 20130320, end: 20130323

REACTIONS (1)
  - Asthma [Recovered/Resolved]
